FAERS Safety Report 8374823-0 (Version None)
Quarter: 2012Q2

REPORT INFORMATION
  Report Type: 
  Country: None (occurrence: None)
  Receive Date: 20120521
  Receipt Date: 20120509
  Transmission Date: 20120825
  Serious: Yes (Hospitalization, Other)
  Sender: FDA-Public Use
  Company Number: HU-JNJFOC-20120509438

PATIENT
  Age: 8 Year
  Sex: Female
  Weight: 25.3 kg

DRUGS (8)
  1. ETOPOSIDE [Suspect]
     Indication: EWING'S SARCOMA
     Route: 042
     Dates: start: 20111219, end: 20111221
  2. VINCRISTINE [Suspect]
     Indication: EWING'S SARCOMA
     Route: 042
     Dates: start: 20111219, end: 20111219
  3. ONDANSETRON [Concomitant]
     Route: 065
     Dates: start: 20111219, end: 20111219
  4. DOXORUBICIN HCL [Suspect]
     Indication: EWING'S SARCOMA
     Route: 042
     Dates: start: 20111219, end: 20111222
  5. APREPITANT [Suspect]
     Indication: PROPHYLAXIS OF NAUSEA AND VOMITING
     Route: 048
     Dates: start: 20111219, end: 20111221
  6. IFOSFAMIDE [Suspect]
     Indication: EWING'S SARCOMA
     Route: 042
     Dates: start: 20111219, end: 20111221
  7. DEXAMETHASONE [Concomitant]
     Route: 042
     Dates: start: 20111219, end: 20111219
  8. MESNA [Concomitant]
     Indication: PROPHYLAXIS
     Route: 042
     Dates: start: 20111219, end: 20111221

REACTIONS (3)
  - SEPSIS [None]
  - PANCYTOPENIA [None]
  - OFF LABEL USE [None]
